FAERS Safety Report 23876723 (Version 10)
Quarter: 2024Q4

REPORT INFORMATION
  Report Type: Report from Study
  Country: MX (occurrence: MX)
  Receive Date: 20240521
  Receipt Date: 20241210
  Transmission Date: 20250115
  Serious: Yes (Disabling, Other)
  Sender: NOVARTIS
  Company Number: MX-002147023-NVSC2023MX186904

PATIENT
  Sex: Male
  Weight: 72 kg

DRUGS (12)
  1. GILENYA [Suspect]
     Active Substance: FINGOLIMOD HYDROCHLORIDE
     Indication: Multiple sclerosis
     Dosage: 0.5 MG, QD
     Route: 048
     Dates: start: 20210121
  2. GILENYA [Suspect]
     Active Substance: FINGOLIMOD HYDROCHLORIDE
     Dosage: 0.5 MG, QD
     Route: 048
     Dates: start: 20211004
  3. GILENYA [Suspect]
     Active Substance: FINGOLIMOD HYDROCHLORIDE
     Dosage: UNK, QOD (EVERY OTHER DAY)
     Route: 048
  4. GILENYA [Suspect]
     Active Substance: FINGOLIMOD HYDROCHLORIDE
     Dosage: 0.5 MG, QD
     Route: 048
  5. GILENYA [Suspect]
     Active Substance: FINGOLIMOD HYDROCHLORIDE
     Dosage: 0.5 MG, QD
     Route: 048
  6. GILENYA [Suspect]
     Active Substance: FINGOLIMOD HYDROCHLORIDE
     Dosage: 1 DOSAGE FORM, QD (1 OF 0.5MG)
     Route: 048
  7. GILENYA [Suspect]
     Active Substance: FINGOLIMOD HYDROCHLORIDE
     Dosage: 0.5 MG, QD
     Route: 048
     Dates: start: 2023
  8. CARBAMAZEPINE [Suspect]
     Active Substance: CARBAMAZEPINE
     Indication: Stress
     Dosage: 1 IN THE MORNING AND 2 AT NIGHT
     Route: 065
  9. CARBAMAZEPINE [Suspect]
     Active Substance: CARBAMAZEPINE
     Indication: Depression
  10. LOSARTAN [Concomitant]
     Active Substance: LOSARTAN
     Indication: Cardiac disorder
     Dosage: UNK
     Route: 065
  11. CALCIUM PANTOTHENATE\CYANOCOBALAMIN\NIACINAMIDE\PYRIDOXINE HYDROCHLORI [Concomitant]
     Active Substance: CALCIUM PANTOTHENATE\CYANOCOBALAMIN\NIACINAMIDE\PYRIDOXINE HYDROCHLORIDE\RIBOFLAVIN\THIAMINE MONONIT
     Indication: Vitamin supplementation
     Dosage: 1 DOSAGE FORM, QD
     Route: 065
  12. CARBAMAZEPINE [Concomitant]
     Active Substance: CARBAMAZEPINE
     Indication: Sleep disorder
     Dosage: 2 DOSAGE FORM, QD (2 OF 100MG)
     Route: 048
     Dates: start: 2003

REACTIONS (31)
  - Gait inability [Not Recovered/Not Resolved]
  - Multiple sclerosis relapse [Recovered/Resolved with Sequelae]
  - Dysstasia [Not Recovered/Not Resolved]
  - Movement disorder [Unknown]
  - Gait disturbance [Not Recovered/Not Resolved]
  - Weight increased [Not Recovered/Not Resolved]
  - Multiple sclerosis relapse [Recovered/Resolved with Sequelae]
  - Fall [Unknown]
  - Joint injury [Recovered/Resolved]
  - Balance disorder [Not Recovered/Not Resolved]
  - Depression [Not Recovered/Not Resolved]
  - Vision blurred [Not Recovered/Not Resolved]
  - Musculoskeletal stiffness [Recovering/Resolving]
  - Stress [Unknown]
  - Sensory loss [Unknown]
  - Malaise [Unknown]
  - Oropharyngeal discomfort [Recovered/Resolved]
  - Visual impairment [Not Recovered/Not Resolved]
  - Drug ineffective [Unknown]
  - Product use in unapproved indication [Unknown]
  - Memory impairment [Unknown]
  - Hypertension [Not Recovered/Not Resolved]
  - Dyspnoea [Recovered/Resolved]
  - Muscle rigidity [Recovering/Resolving]
  - Feeling of despair [Unknown]
  - Peripheral swelling [Not Recovered/Not Resolved]
  - Off label use [Unknown]
  - Weight decreased [Unknown]
  - Weight abnormal [Recovering/Resolving]
  - Confusional state [Unknown]
  - Road traffic accident [Unknown]

NARRATIVE: CASE EVENT DATE: 20210101
